FAERS Safety Report 6188740-8 (Version None)
Quarter: 2009Q2

REPORT INFORMATION
  Report Type: 
  Country: None (occurrence: None)
  Receive Date: 20090511
  Receipt Date: 20090511
  Transmission Date: 20091009
  Serious: Yes (Hospitalization)
  Sender: FDA-Public Use
  Company Number: None

PATIENT
  Age: 65 Year
  Sex: Female
  Weight: 60 kg

DRUGS (9)
  1. GEMCITABINE [Suspect]
     Indication: ADENOCARCINOMA
     Dates: start: 20080701, end: 20090129
  2. MONTELUKAST [Concomitant]
  3. OLANZAPINE [Concomitant]
  4. MORPHINE [Concomitant]
  5. SENNA [Concomitant]
  6. ASPIRIN [Concomitant]
  7. LEVOFLOXACIN [Concomitant]
  8. OMEPRAZOLE [Concomitant]
  9. PAROXETIEN [Concomitant]

REACTIONS (7)
  - CAPILLARY LEAK SYNDROME [None]
  - DEHYDRATION [None]
  - GENERALISED OEDEMA [None]
  - HYPOTENSION [None]
  - MENTAL STATUS CHANGES [None]
  - RENAL FAILURE ACUTE [None]
  - WEIGHT INCREASED [None]
